FAERS Safety Report 7815093-9 (Version None)
Quarter: 2011Q4

REPORT INFORMATION
  Report Type: 
  Country: None (occurrence: None)
  Receive Date: 20111014
  Receipt Date: 20111014
  Transmission Date: 20120403
  Serious: Yes (Hospitalization)
  Sender: FDA-Public Use
  Company Number: None

PATIENT
  Age: 61 Year
  Sex: Female
  Weight: 102.5 kg

DRUGS (2)
  1. FLUOROURACIL [Concomitant]
     Dosage: 6600MG
     Route: 041
     Dates: start: 20101102, end: 20110712
  2. PRALATREXATE [Suspect]
     Indication: COLON CANCER METASTATIC
     Dosage: 165MG
     Route: 041
     Dates: start: 20101101, end: 20110725

REACTIONS (4)
  - ORAL DISORDER [None]
  - MUCOSAL INFLAMMATION [None]
  - ENTEROBACTER SEPSIS [None]
  - DEVICE RELATED INFECTION [None]
